FAERS Safety Report 6897533-5 (Version None)
Quarter: 2010Q3

REPORT INFORMATION
  Report Type: 
  Country: None (occurrence: None)
  Receive Date: 20100802
  Receipt Date: 20100720
  Transmission Date: 20110219
  Serious: Yes (Other)
  Sender: FDA-Public Use
  Company Number: US-ELI_LILLY_AND_COMPANY-US201007006053

PATIENT
  Sex: Female

DRUGS (4)
  1. FORTEO [Suspect]
     Indication: OSTEOPOROSIS
     Dosage: 20 UG, DAILY (1/D)
  2. REQUIP [Concomitant]
  3. REGLAN [Concomitant]
     Indication: NAUSEA
     Dosage: 10 MG, AS NEEDED
  4. RELAFEN [Concomitant]
     Indication: PAIN
     Dosage: 750 MG, AS NEEDED

REACTIONS (6)
  - COLON CANCER [None]
  - DIPLOPIA [None]
  - INTESTINAL POLYP [None]
  - MYASTHENIA GRAVIS [None]
  - NERVOUS SYSTEM DISORDER [None]
  - RESTLESS LEGS SYNDROME [None]
